FAERS Safety Report 7169658-0 (Version None)
Quarter: 2010Q4

REPORT INFORMATION
  Report Type: 
  Country: None (occurrence: None)
  Receive Date: 20101217
  Receipt Date: 20101208
  Transmission Date: 20110411
  Serious: Yes (Death)
  Sender: FDA-Public Use
  Company Number: IT-JNJFOC-20101204178

PATIENT
  Age: 70 Year
  Sex: Male

DRUGS (16)
  1. REMICADE [Suspect]
     Indication: RHEUMATOID ARTHRITIS
     Route: 042
  2. BENTELAN [Suspect]
     Indication: BACK PAIN
     Route: 030
  3. MEDROL [Concomitant]
  4. METHOTREXATE [Concomitant]
  5. FOLINA [Concomitant]
  6. VOLTAREN [Concomitant]
  7. TACHIPIRINA [Concomitant]
  8. ALENDRONIC ACID [Concomitant]
  9. DIDROGYL [Concomitant]
  10. LANSOX [Concomitant]
  11. PROVISACOR [Concomitant]
  12. RIVOTRIL [Concomitant]
  13. ASPIRIN [Concomitant]
  14. NICETILE [Concomitant]
  15. SICCAFLUID [Concomitant]
     Route: 047
  16. ARTIFICIAL TEARS NOS [Concomitant]

REACTIONS (4)
  - EPSTEIN-BARR VIRUS TEST POSITIVE [None]
  - KLEBSIELLA SEPSIS [None]
  - SCIATICA [None]
  - TOXOPLASMOSIS [None]
